FAERS Safety Report 11969374 (Version 3)
Quarter: 2017Q2

REPORT INFORMATION
  Report Type: Report from Study
  Country: US (occurrence: US)
  Receive Date: 20160128
  Receipt Date: 20170413
  Transmission Date: 20170829
  Serious: Yes (Hospitalization)
  Sender: FDA-Public Use
  Company Number: US-SA-2016SA014790

PATIENT
  Age: 47 Year
  Sex: Male

DRUGS (1)
  1. FABRAZYME [Suspect]
     Active Substance: AGALSIDASE BETA
     Indication: FABRY^S DISEASE
     Route: 042
     Dates: start: 20110501

REACTIONS (6)
  - Constipation [Recovered/Resolved]
  - Tooth disorder [Not Recovered/Not Resolved]
  - Vomiting [Recovered/Resolved]
  - Pain [Unknown]
  - Tooth loss [Not Recovered/Not Resolved]
  - Abdominal pain [Recovered/Resolved]

NARRATIVE: CASE EVENT DATE: 20160102
